FAERS Safety Report 25339940 (Version 5)
Quarter: 2025Q3

REPORT INFORMATION
  Report Type: Spontaneous
  Country: EU (occurrence: EU)
  Receive Date: 20250521
  Receipt Date: 20250805
  Transmission Date: 20251021
  Serious: Yes (Other)
  Sender: NOVARTIS
  Company Number: EU-SANDOZ-SDZ2025IT021638

PATIENT
  Age: 54 Year
  Sex: Male
  Weight: 80 kg

DRUGS (18)
  1. VALSARTAN [Suspect]
     Active Substance: VALSARTAN
     Indication: Hyperlipidaemia
     Dosage: 80 MG, QD, 1 TABLET/DAY
     Route: 065
  2. EZETIMIBE [Interacting]
     Active Substance: EZETIMIBE
     Indication: Hyperlipidaemia
     Dosage: 10 MG, QD
     Route: 065
  3. FENOFIBRATE [Interacting]
     Active Substance: FENOFIBRATE
     Indication: Hyperlipidaemia
     Dosage: 145 MG 1  CPR/DAY
     Route: 048
     Dates: start: 2016, end: 20241010
  4. FENOFIBRATE [Interacting]
     Active Substance: FENOFIBRATE
     Indication: Hypercholesterolaemia
     Dosage: 145 MG, QD
     Route: 065
     Dates: start: 2016, end: 20241010
  5. FENOFIBRATE [Interacting]
     Active Substance: FENOFIBRATE
     Indication: Hypercholesterolaemia
  6. BEMPEDOIC ACID [Suspect]
     Active Substance: BEMPEDOIC ACID
     Indication: Hypercholesterolaemia
     Dosage: 180 MG 1 CPR/DAY
     Route: 048
     Dates: start: 20230501
  7. BEMPEDOIC ACID [Suspect]
     Active Substance: BEMPEDOIC ACID
     Dosage: 180 MG, QD
     Route: 048
     Dates: start: 20230501
  8. EVOLOCUMAB [Suspect]
     Active Substance: EVOLOCUMAB
     Indication: Hyperlipidaemia
     Dosage: 420 MG, Q4W
     Route: 058
  9. EVOLOCUMAB [Suspect]
     Active Substance: EVOLOCUMAB
     Dosage: 420 MG, ONCE EVERY 4 WK (EVERY 28 DAYS)
     Route: 058
     Dates: start: 2017
  10. EVOLOCUMAB [Suspect]
     Active Substance: EVOLOCUMAB
     Route: 058
  11. EVOLOCUMAB [Suspect]
     Active Substance: EVOLOCUMAB
     Dosage: 140 MG, Q4W (3 SC VIALS EVERY 4 WEEKS)
     Route: 058
  12. RANOLAZINE [Suspect]
     Active Substance: RANOLAZINE
     Indication: Hyperlipidaemia
     Dosage: 375 MG, TWICE EVERY 1WK (BIW)
     Route: 065
  13. RANOLAZINE [Suspect]
     Active Substance: RANOLAZINE
     Dosage: 375 MG, BIW
     Route: 065
  14. BISOPROLOL FUMARATE [Suspect]
     Active Substance: BISOPROLOL FUMARATE
     Indication: Hyperlipidaemia
     Route: 065
  15. LEVOTHYROXINE [Suspect]
     Active Substance: LEVOTHYROXINE
     Indication: Hyperlipidaemia
     Dosage: 175 UG, QD, 1 TABLET/DAY
     Route: 065
  16. PANTOPRAZOLE [Suspect]
     Active Substance: PANTOPRAZOLE
     Indication: Hyperlipidaemia
     Dosage: 20 MG, QD, 1 CPR/DIE
     Route: 065
  17. PANTOPRAZOLE [Suspect]
     Active Substance: PANTOPRAZOLE
     Dosage: 20 MG 1  CPR/DIE.
     Route: 065
  18. PANTOPRAZOLE [Suspect]
     Active Substance: PANTOPRAZOLE
     Dosage: 20 MG, QD, (20 MG, QD, 1 TABLET/DAY)
     Route: 065

REACTIONS (6)
  - High density lipoprotein decreased [Recovering/Resolving]
  - High density lipoprotein decreased [Recovered/Resolved]
  - High density lipoprotein decreased [Recovering/Resolving]
  - High density lipoprotein decreased [Recovering/Resolving]
  - Hypercholesterolaemia [Unknown]
  - Drug interaction [Unknown]

NARRATIVE: CASE EVENT DATE: 20240905
